FAERS Safety Report 25510493 (Version 3)
Quarter: 2025Q3

REPORT INFORMATION
  Report Type: Report from Study
  Country: CA (occurrence: CA)
  Receive Date: 20250703
  Receipt Date: 20250902
  Transmission Date: 20251020
  Serious: Yes (Other)
  Sender: OTSUKA
  Company Number: CA-MMM-Otsuka-Y7EOAHN2

PATIENT
  Sex: Male

DRUGS (1)
  1. ARIPIPRAZOLE [Suspect]
     Active Substance: ARIPIPRAZOLE
     Indication: Product used for unknown indication
     Route: 030

REACTIONS (4)
  - Mania [Recovering/Resolving]
  - Irritability [Recovering/Resolving]
  - Anxiety [Recovering/Resolving]
  - Inappropriate schedule of product administration [Unknown]
